FAERS Safety Report 19083158 (Version 1)
Quarter: 2021Q2

REPORT INFORMATION
  Report Type: Spontaneous
  Country: CN (occurrence: CN)
  Receive Date: 20210401
  Receipt Date: 20210401
  Transmission Date: 20210717
  Serious: Yes (Hospitalization, Other)
  Sender: FDA-Public Use
  Company Number: CN-FRESENIUS KABI-FK202102992

PATIENT
  Age: 82 Year
  Sex: Male

DRUGS (3)
  1. ALANYL GLUTAMINE [Concomitant]
     Active Substance: ALANYL GLUTAMINE
     Indication: PARENTERAL NUTRITION
     Route: 041
     Dates: start: 20210316, end: 20210321
  2. LIPOVENOES MCT 20% [Suspect]
     Active Substance: EGG PHOSPHOLIPIDS\GLYCERIN\MEDIUM-CHAIN TRIGLYCERIDES\SOYBEAN OIL
     Indication: PARENTERAL NUTRITION
     Route: 041
     Dates: start: 20210316, end: 20210316
  3. AMINO ACIDS NOS [Concomitant]
     Active Substance: AMINO ACIDS, SOURCE UNSPECIFIED
     Indication: PARENTERAL NUTRITION
     Route: 041
     Dates: start: 20210316, end: 20210321

REACTIONS (4)
  - Oliguria [Recovering/Resolving]
  - Metabolic acidosis [Recovering/Resolving]
  - Shock [Recovering/Resolving]
  - Pyrexia [Recovering/Resolving]

NARRATIVE: CASE EVENT DATE: 20210316
